FAERS Safety Report 7145984-6 (Version None)
Quarter: 2010Q4

REPORT INFORMATION
  Report Type: 
  Country: None (occurrence: None)
  Receive Date: 20101129
  Receipt Date: 20101119
  Transmission Date: 20110411
  Serious: Yes (Hospitalization, Other)
  Sender: FDA-Public Use
  Company Number: 20109518

PATIENT
  Sex: Male

DRUGS (1)
  1. LIORESAL [Suspect]
     Indication: MUSCLE SPASTICITY
     Dosage: DAILY, INTRATHECAL
     Route: 037

REACTIONS (11)
  - CLONUS [None]
  - DEVICE CONNECTION ISSUE [None]
  - DEVICE OCCLUSION [None]
  - DRUG WITHDRAWAL SYNDROME [None]
  - HYPERTONIA [None]
  - IMPLANT SITE EFFUSION [None]
  - MUSCLE SPASMS [None]
  - NAUSEA [None]
  - PRURITUS [None]
  - TREMOR [None]
  - VOMITING [None]
